FAERS Safety Report 9315198 (Version 3)
Quarter: 2013Q3

REPORT INFORMATION
  Report Type: Spontaneous
  Country: US (occurrence: US)
  Receive Date: 20130529
  Receipt Date: 20130723
  Transmission Date: 20140515
  Serious: Yes (Hospitalization)
  Sender: FDA-Public Use
  Company Number: US-GILEAD-2013-0076025

PATIENT
  Sex: Female

DRUGS (4)
  1. LETAIRIS [Suspect]
     Indication: PULMONARY ARTERIAL HYPERTENSION
     Dosage: 5 MG, QD
     Dates: start: 20130315
  2. LETAIRIS [Suspect]
     Dates: start: 20130316
  3. LETAIRIS [Suspect]
  4. REVATIO [Concomitant]

REACTIONS (3)
  - Carbon dioxide increased [Unknown]
  - Pulmonary hypertension [Unknown]
  - Pulmonary arterial hypertension [Not Recovered/Not Resolved]
